FAERS Safety Report 25434268 (Version 1)
Quarter: 2025Q2

REPORT INFORMATION
  Report Type: Spontaneous
  Country: US (occurrence: US)
  Receive Date: 20250613
  Receipt Date: 20250613
  Transmission Date: 20250717
  Serious: No
  Sender: UNIQUE PHARMACEUTICALS
  Company Number: US-UniquePharma-US-2025UPLSPO00071

PATIENT

DRUGS (1)
  1. CARBAMAZEPINE [Suspect]
     Active Substance: CARBAMAZEPINE
     Indication: Product used for unknown indication
     Route: 065

REACTIONS (5)
  - Hypersomnia [Unknown]
  - Balance disorder [Unknown]
  - Blood sodium decreased [Unknown]
  - Headache [Unknown]
  - Dizziness [Unknown]
